FAERS Safety Report 22268368 (Version 3)
Quarter: 2024Q4

REPORT INFORMATION
  Report Type: Spontaneous
  Country: US (occurrence: US)
  Receive Date: 20230430
  Receipt Date: 20241110
  Transmission Date: 20250114
  Serious: No
  Sender: SANOFI AVENTIS
  Company Number: US-SANOFI-01586316

PATIENT
  Age: 64 Year
  Sex: Female

DRUGS (3)
  1. TOUJEO [Suspect]
     Active Substance: INSULIN GLARGINE
     Indication: Diabetes mellitus
     Dosage: 56 U QD
     Dates: start: 202211
  2. TOUJEO [Suspect]
     Active Substance: INSULIN GLARGINE
     Dosage: 50 U, QD
     Route: 065
  3. FIASP [Concomitant]
     Active Substance: INSULIN ASPART

REACTIONS (3)
  - Diabetic eye disease [Recovered/Resolved]
  - Visual impairment [Unknown]
  - Intercepted product storage error [Unknown]
